FAERS Safety Report 4322628-X (Version None)
Quarter: 2004Q1

REPORT INFORMATION
  Report Type: 
  Country: None (occurrence: None)
  Receive Date: 20040319
  Receipt Date: 20020130
  Transmission Date: 20041129
  Serious: Yes (Hospitalization)
  Sender: FDA-Public Use
  Company Number: 2002IC000054

PATIENT
  Age: 76 Year
  Sex: Male
  Weight: 91.6 kg

DRUGS (2)
  1. ANCOBON [Suspect]
     Indication: MENINGITIS CRYPTOCOCCAL
     Dosage: 500 MG;EVERY 6 HOURS;ORAL
     Route: 048
     Dates: start: 20011126, end: 20011220
  2. AMBISOME [Suspect]
     Indication: MENINGITIS CRYPTOCOCCAL
     Dosage: 6 MG/KG;DAILY;INTRAVENOUS
     Route: 042
     Dates: start: 20011130, end: 20011220

REACTIONS (2)
  - DEPRESSED LEVEL OF CONSCIOUSNESS [None]
  - ENCEPHALOPATHY [None]
